FAERS Safety Report 16627296 (Version 1)
Quarter: 2019Q3

REPORT INFORMATION
  Report Type: Spontaneous
  Country: CN (occurrence: CN)
  Receive Date: 20190724
  Receipt Date: 20190724
  Transmission Date: 20191004
  Serious: Yes (Hospitalization)
  Sender: FDA-Public Use
  Company Number: PHHY2019CN169652

PATIENT
  Age: 49 Year
  Sex: Male

DRUGS (1)
  1. TEGRETOL [Suspect]
     Active Substance: CARBAMAZEPINE
     Indication: AUDITORY NERVE DISORDER
     Dosage: 0.4 G, BID
     Route: 048
     Dates: start: 20190525, end: 20190611

REACTIONS (1)
  - Generalised erythema [Recovering/Resolving]

NARRATIVE: CASE EVENT DATE: 20190611
